FAERS Safety Report 12325838 (Version 1)
Quarter: 2016Q2

REPORT INFORMATION
  Report Type: Spontaneous
  Country: US (occurrence: US)
  Receive Date: 20160503
  Receipt Date: 20160503
  Transmission Date: 20160815
  Serious: No
  Sender: FDA-Public Use
  Company Number: US-ASTRAZENECA-2016SE45141

PATIENT
  Age: 66 Year
  Sex: Male

DRUGS (1)
  1. PRILOSEC OTC [Suspect]
     Active Substance: OMEPRAZOLE MAGNESIUM
     Route: 048

REACTIONS (3)
  - Lip injury [Not Recovered/Not Resolved]
  - Lip haemorrhage [Recovered/Resolved]
  - Product package associated injury [Unknown]

NARRATIVE: CASE EVENT DATE: 20160421
